FAERS Safety Report 8877095 (Version 1)
Quarter: 2012Q4

REPORT INFORMATION
  Report Type: Report from Study
  Country: US (occurrence: US)
  Receive Date: 20121030
  Receipt Date: 20121030
  Transmission Date: 20130627
  Serious: No
  Sender: FDA-Public Use
  Company Number: US-ABBOTT-12P-163-0918752-00

PATIENT
  Age: 39 Year
  Sex: Female

DRUGS (6)
  1. LUPRON DEPOT 3.75 MG [Suspect]
     Indication: UTERINE LEIOMYOMA
     Dates: start: 20120309
  2. LUPRON DEPOT 3.75 MG [Suspect]
     Indication: ENDOMETRIOSIS
  3. NORETHINDRONE [Concomitant]
     Indication: PRODUCT USED FOR UNKNOWN INDICATION
  4. VITAMIN C [Concomitant]
     Indication: PRODUCT USED FOR UNKNOWN INDICATION
  5. VITAMIN B12 [Concomitant]
     Indication: PRODUCT USED FOR UNKNOWN INDICATION
  6. NAPROSYN [Concomitant]
     Indication: PRODUCT USED FOR UNKNOWN INDICATION

REACTIONS (5)
  - Menstruation irregular [Unknown]
  - Urinary tract infection [Unknown]
  - Back pain [Unknown]
  - Chromaturia [Unknown]
  - Dysgeusia [Unknown]
